FAERS Safety Report 10162178 (Version 2)
Quarter: 2014Q2

REPORT INFORMATION
  Report Type: Spontaneous
  Country: US (occurrence: None)
  Receive Date: 20140507
  Receipt Date: 20140516
  Transmission Date: 20141212
  Serious: Yes (Other)
  Sender: FDA-Public Use
  Company Number: 20140247

PATIENT
  Age: 33 Year
  Sex: Female

DRUGS (1)
  1. SODIUM THIOSULFATE [Suspect]
     Indication: CALCIPHYLAXIS
     Route: 042

REACTIONS (5)
  - Anion gap increased [None]
  - Off label use [None]
  - False positive investigation result [None]
  - Nausea [None]
  - Treatment noncompliance [None]
